FAERS Safety Report 18038190 (Version 1)
Quarter: 2020Q3

REPORT INFORMATION
  Report Type: Spontaneous
  Country: US (occurrence: US)
  Receive Date: 20200718
  Receipt Date: 20200718
  Transmission Date: 20201103
  Serious: Yes (Death)
  Sender: FDA-Public Use
  Company Number: US-UNITED THERAPEUTICS-UNT-2020-010369

PATIENT
  Age: 70 Year
  Sex: Female

DRUGS (3)
  1. TYVASO [Suspect]
     Active Substance: TREPROSTINIL
     Indication: PULMONARY ARTERIAL HYPERTENSION
     Dosage: 6 ?G, QID
     Dates: start: 20200627
  2. REMODULIN [Suspect]
     Active Substance: TREPROSTINIL
     Indication: PULMONARY ARTERIAL HYPERTENSION
     Dosage: UNK
     Route: 058
     Dates: start: 20190611
  3. REMODULIN [Suspect]
     Active Substance: TREPROSTINIL
     Dosage: 0.134 ?G/KG, CONTINUING
     Route: 058
     Dates: end: 202006

REACTIONS (1)
  - Death [Fatal]

NARRATIVE: CASE EVENT DATE: 20200713
